FAERS Safety Report 5416798-X (Version None)
Quarter: 2007Q3

REPORT INFORMATION
  Report Type: 
  Country: None (occurrence: None)
  Receive Date: 20070816
  Receipt Date: 20070808
  Transmission Date: 20080115
  Serious: Yes (Death, Hospitalization)
  Sender: FDA-Public Use
  Company Number: US-ROCHE-511015

PATIENT
  Age: 64 Year
  Sex: Male

DRUGS (2)
  1. XELODA [Suspect]
     Dosage: THE PATIENT WAS ON XELODA THERAPY FOR 14 DAYS ON 7 DAYS OFF. ADDITIONAL INDICATION BILIARY SYSTEM C+
     Route: 065
     Dates: start: 20070518, end: 20070531
  2. UNSPECIFIED MEDICATIONS [Concomitant]

REACTIONS (2)
  - FLUID RETENTION [None]
  - PANCREATIC CARCINOMA METASTATIC [None]
